FAERS Safety Report 8342484-2 (Version None)
Quarter: 2012Q2

REPORT INFORMATION
  Report Type: 
  Country: None (occurrence: None)
  Receive Date: 20120508
  Receipt Date: 20120426
  Transmission Date: 20120825
  Serious: No
  Sender: FDA-Public Use
  Company Number: US-BIOGENIDEC-2012BI014916

PATIENT
  Sex: Female

DRUGS (2)
  1. TYSABRI [Suspect]
     Indication: MULTIPLE SCLEROSIS
     Route: 042
     Dates: start: 20110127
  2. TYSABRI [Suspect]
     Route: 042
     Dates: start: 20110802

REACTIONS (10)
  - GAIT DISTURBANCE [None]
  - MOTION SICKNESS [None]
  - MUSCLE SPASMS [None]
  - DEPRESSED MOOD [None]
  - MOOD SWINGS [None]
  - SENSATION OF HEAVINESS [None]
  - HYPOAESTHESIA [None]
  - MULTIPLE SCLEROSIS RELAPSE [None]
  - STRESS [None]
  - SCAN THYROID GLAND [None]
